FAERS Safety Report 12205506 (Version 2)
Quarter: 2016Q2

REPORT INFORMATION
  Report Type: Spontaneous
  Country: DE (occurrence: DE)
  Receive Date: 20160323
  Receipt Date: 20160412
  Transmission Date: 20160815
  Serious: Yes (Hospitalization, Disabling)
  Sender: FDA-Public Use
  Company Number: GXKR2016DE001457

PATIENT
  Age: 43 Year
  Sex: Male

DRUGS (9)
  1. QUETIAPIN HEXAL [Suspect]
     Active Substance: QUETIAPINE FUMARATE
     Indication: PRODUCT USED FOR UNKNOWN INDICATION
     Dosage: 50 MG IN THE MORNING AND 200 MG IN THE EVENING
     Route: 048
     Dates: start: 20151123, end: 20151202
  2. MELPERONE [Suspect]
     Active Substance: MELPERONE
     Indication: PRODUCT USED FOR UNKNOWN INDICATION
     Dosage: UNK UKN, UNK
     Route: 048
     Dates: start: 20151209, end: 20160120
  3. MELNEURIN [Suspect]
     Active Substance: MELPERONE HYDROCHLORIDE
     Indication: PRODUCT USED FOR UNKNOWN INDICATION
     Dosage: VARIABLE DOSAGES
     Route: 048
     Dates: start: 20160120, end: 20160308
  4. RISPERIDON ATID [Suspect]
     Active Substance: RISPERIDONE
     Indication: DELUSION
     Dosage: UNK UKN, UNK
     Route: 048
     Dates: end: 20151123
  5. ESCITALOPRAM BASICS [Suspect]
     Active Substance: ESCITALOPRAM OXALATE
     Indication: PRODUCT USED FOR UNKNOWN INDICATION
     Dosage: UNK UKN, UNK
     Dates: start: 20151112
  6. QUETIAPIN HEXAL [Suspect]
     Active Substance: QUETIAPINE FUMARATE
     Dosage: 50 MG, BID
     Route: 048
     Dates: start: 20151203, end: 20151209
  7. RISPERIDONE. [Suspect]
     Active Substance: RISPERIDONE
     Indication: PRODUCT USED FOR UNKNOWN INDICATION
     Dosage: UNK UKN, UNK
     Dates: start: 20151209, end: 20160120
  8. ZYPREXA [Suspect]
     Active Substance: OLANZAPINE
     Indication: PRODUCT USED FOR UNKNOWN INDICATION
     Dosage: VARIABLE DOSAGES
     Route: 048
     Dates: start: 20160120, end: 20160308
  9. MIRTAZAPINE. [Suspect]
     Active Substance: MIRTAZAPINE
     Indication: PRODUCT USED FOR UNKNOWN INDICATION
     Dosage: UNK UKN, UNK
     Route: 048
     Dates: start: 20150209, end: 20160120

REACTIONS (6)
  - Acute stress disorder [Not Recovered/Not Resolved]
  - Restless legs syndrome [Not Recovered/Not Resolved]
  - Nervousness [Not Recovered/Not Resolved]
  - Dyskinesia [Not Recovered/Not Resolved]
  - Impaired work ability [Not Recovered/Not Resolved]
  - Akathisia [Not Recovered/Not Resolved]

NARRATIVE: CASE EVENT DATE: 20151125
